FAERS Safety Report 24131692 (Version 2)
Quarter: 2024Q3

REPORT INFORMATION
  Report Type: Spontaneous
  Country: JP (occurrence: None)
  Receive Date: 20240724
  Receipt Date: 20240801
  Transmission Date: 20241016
  Serious: Yes (Other)
  Sender: ASTRAZENECA
  Company Number: 2024A164855

PATIENT
  Age: 83 Year
  Sex: Female

DRUGS (11)
  1. LOKELMA [Suspect]
     Active Substance: SODIUM ZIRCONIUM CYCLOSILICATE
     Indication: Hyperkalaemia
     Dosage: DOSE UNKNOWN
     Route: 048
     Dates: start: 20240214
  2. AZELNIDIPINE [Concomitant]
     Active Substance: AZELNIDIPINE
     Dosage: DOSE UNKNOWN
  3. APIXABAN [Concomitant]
     Active Substance: APIXABAN
     Dosage: DOSE UNKNOWN
  4. IFENPRODIL TARTRATE [Concomitant]
     Active Substance: IFENPRODIL TARTRATE
     Dosage: DOSE UNKNOWN
  5. TACROLIMUS [Concomitant]
     Active Substance: TACROLIMUS
     Dosage: DOSE UNKNOWN
  6. PYRIDOSTIGMINE BROMIDE [Concomitant]
     Active Substance: PYRIDOSTIGMINE BROMIDE
     Dosage: DOSE UNKNOWN
  7. VONOPRAZAN FUMARATE [Concomitant]
     Active Substance: VONOPRAZAN FUMARATE
     Dosage: DOSE UNKNOWN
  8. SULFAMETHOXAZOLE [Concomitant]
     Active Substance: SULFAMETHOXAZOLE
     Dosage: DOSE UNKNOWN
  9. METHYLCOBALAMIN [Concomitant]
     Active Substance: METHYLCOBALAMIN
     Dosage: DOSE UNKNOWN
  10. INSULIN NOS [Concomitant]
     Active Substance: INSULIN NOS
     Dosage: DOSE UNKNOWN
     Dates: start: 20240214
  11. DEXTROSE [Concomitant]
     Active Substance: DEXTROSE\DEXTROSE MONOHYDRATE
     Dosage: DOSE UNKNOWN
     Dates: start: 20240214

REACTIONS (2)
  - Electrocardiogram T wave inversion [Unknown]
  - Bundle branch block right [Unknown]

NARRATIVE: CASE EVENT DATE: 20240219
